FAERS Safety Report 15066716 (Version 3)
Quarter: 2018Q4

REPORT INFORMATION
  Report Type: Spontaneous
  Country: US (occurrence: US)
  Receive Date: 20180626
  Receipt Date: 20181003
  Transmission Date: 20190204
  Serious: Yes (Other)
  Sender: FDA-Public Use
  Company Number: US-BAUSCH-BL-2018-017512

PATIENT
  Age: 20 Year
  Sex: Female
  Weight: 56.75 kg

DRUGS (6)
  1. DIASTAT [Suspect]
     Active Substance: DIAZEPAM
     Route: 054
     Dates: start: 20180617
  2. VIMPAT [Concomitant]
     Active Substance: LACOSAMIDE
     Indication: PRODUCT USED FOR UNKNOWN INDICATION
  3. CARPAQUIN [Concomitant]
     Indication: PRODUCT USED FOR UNKNOWN INDICATION
  4. DIASTAT [Suspect]
     Active Substance: DIAZEPAM
     Indication: SEIZURE CLUSTER
     Dosage: 20 MG, AS NEEDED
     Route: 054
     Dates: start: 2009
  5. KEPPRA [Concomitant]
     Active Substance: LEVETIRACETAM
     Indication: PRODUCT USED FOR UNKNOWN INDICATION
  6. DIASTAT [Suspect]
     Active Substance: DIAZEPAM
     Dosage: USED A SEPARATE PACK OF DIAZEPAM RECTAL GEL OF 20MG
     Route: 054
     Dates: start: 20180620, end: 20180621

REACTIONS (3)
  - Screaming [Recovered/Resolved]
  - Seizure cluster [Recovered/Resolved]
  - Drug ineffective [Recovered/Resolved]

NARRATIVE: CASE EVENT DATE: 201803
